FAERS Safety Report 21400079 (Version 1)
Quarter: 2022Q4

REPORT INFORMATION
  Report Type: Spontaneous
  Country: DE (occurrence: DE)
  Receive Date: 20221002
  Receipt Date: 20221002
  Transmission Date: 20230113
  Serious: Yes (Hospitalization)
  Sender: FDA-Public Use
  Company Number: DE-NOVARTISPH-NVSC2022DE217360

PATIENT
  Age: 67 Year
  Sex: Female
  Weight: 75 kg

DRUGS (10)
  1. PREDNISOLONE [Suspect]
     Active Substance: PREDNISOLONE
     Indication: Product used for unknown indication
     Dosage: UNK
     Route: 048
  2. SPASMEX [Concomitant]
     Indication: Product used for unknown indication
     Dosage: 20 MG (0-0-1-0)
     Route: 048
  3. BISOPROLOL [Concomitant]
     Active Substance: BISOPROLOL
     Indication: Product used for unknown indication
     Dosage: 5 MG (1-0-1-0)
     Route: 048
  4. EDOXABAN [Concomitant]
     Active Substance: EDOXABAN
     Indication: Product used for unknown indication
     Dosage: 60 MG (1-0-0-0)
     Route: 048
  5. NIFEDIPINE [Concomitant]
     Active Substance: NIFEDIPINE
     Indication: Product used for unknown indication
     Dosage: 5 MG (BEI BEDARF BIS ZU DREI MAL EINE TABLETTE PRO TAG)
     Route: 048
  6. ESTRIOL [Concomitant]
     Active Substance: ESTRIOL
     Indication: Product used for unknown indication
     Dosage: 1 MG (ZWEI BIS DREI MAL W?CHENTLICH, SALBE)
     Route: 067
  7. LAMOTRIGINE [Concomitant]
     Active Substance: LAMOTRIGINE
     Indication: Product used for unknown indication
     Dosage: 100 MG (0.5-0-0-1)
     Route: 048
  8. LERCANIDIPINE [Concomitant]
     Active Substance: LERCANIDIPINE
     Indication: Product used for unknown indication
     Dosage: 10 MG (1-0-0-0)
     Route: 048
  9. PANTOPRAZOLE SODIUM [Concomitant]
     Active Substance: PANTOPRAZOLE SODIUM
     Indication: Product used for unknown indication
     Dosage: 40 MG (1-0-0-0)
     Route: 048
  10. ATORVASTATIN [Concomitant]
     Active Substance: ATORVASTATIN
     Indication: Product used for unknown indication
     Dosage: 20 MG (0-0-1-0)
     Route: 048

REACTIONS (8)
  - Angina pectoris [Unknown]
  - Palpitations [Unknown]
  - Tachycardia [Unknown]
  - Hypertension [Unknown]
  - Atrial fibrillation [Unknown]
  - Chest discomfort [Unknown]
  - Palpitations [Unknown]
  - Hypertensive crisis [Unknown]
